FAERS Safety Report 10094662 (Version 1)
Quarter: 2014Q2

REPORT INFORMATION
  Report Type: Spontaneous
  Country: US (occurrence: None)
  Receive Date: 20140418
  Receipt Date: 20140418
  Transmission Date: 20141212
  Serious: Yes (Hospitalization, Other)
  Sender: FDA-Public Use
  Company Number: FK201401314

PATIENT
  Age: 76 Year
  Sex: Female

DRUGS (7)
  1. HYDRALAZINE [Suspect]
     Indication: HYPERTENSION
  2. AMLODIPINE (AMLODIPINE) [Concomitant]
  3. LISINOPRIL (LISINOPRIL) [Concomitant]
  4. HYDROCHLOROTHIAZIDE (HYDROCHLOROTHIAZIDE) [Concomitant]
  5. PREDNISONE (PREDNISONE) [Concomitant]
  6. CYCLOPHOSPHAMIDE (CYCLOPHOSPHAMIDE) [Concomitant]
  7. MYCOPHENOLATE MEFETIL (MYCOPHENILATE MOFETIL) [Concomitant]

REACTIONS (11)
  - Glomerulonephritis rapidly progressive [None]
  - Glomerulonephritis rapidly progressive [None]
  - Vasculitis [None]
  - Lupus-like syndrome [None]
  - Fatigue [None]
  - Dyspnoea exertional [None]
  - Pruritus [None]
  - Rash [None]
  - Arthralgia [None]
  - Petechiae [None]
  - Anaemia of chronic disease [None]
